FAERS Safety Report 11178383 (Version 1)
Quarter: 2015Q2

REPORT INFORMATION
  Report Type: Spontaneous
  Country: US (occurrence: None)
  Receive Date: 20150515
  Receipt Date: 20150515
  Transmission Date: 20150821
  Serious: Yes (Hospitalization, Other)
  Sender: FDA-Public Use
  Company Number: 2015007392

PATIENT
  Sex: Female

DRUGS (1)
  1. CIMZIA [Suspect]
     Active Substance: CERTOLIZUMAB PEGOL
     Indication: PRODUCT USED FOR UNKNOWN INDICATION
     Dosage: EV 2 WEEKS
     Route: 058

REACTIONS (4)
  - Alopecia [None]
  - Cardiac failure congestive [None]
  - Pneumonia [None]
  - Pericarditis [None]

NARRATIVE: CASE EVENT DATE: 201407
